FAERS Safety Report 24384031 (Version 1)
Quarter: 2024Q4

REPORT INFORMATION
  Report Type: Report from Study
  Country: US (occurrence: US)
  Receive Date: 20241001
  Receipt Date: 20241001
  Transmission Date: 20250115
  Serious: Yes (Other)
  Sender: JOHNSON AND JOHNSON
  Company Number: US-JNJFOC-20240963944

PATIENT
  Age: 43 Year
  Sex: Female

DRUGS (5)
  1. SPRAVATO [Suspect]
     Active Substance: ESKETAMINE
     Indication: Depression
     Dosage: ^^56 MG, 5 TOTAL DOSES^^
     Dates: start: 20230228, end: 20230314
  2. SPRAVATO [Suspect]
     Active Substance: ESKETAMINE
     Dosage: ^^84 MG, 10 TOTAL DOSES^^
     Dates: start: 20230316, end: 20230516
  3. SPRAVATO [Suspect]
     Active Substance: ESKETAMINE
     Dosage: ^^56 MG, 2 TOTAL DOSES^^
     Dates: start: 20231009, end: 20231013
  4. SPRAVATO [Suspect]
     Active Substance: ESKETAMINE
     Dosage: ^^84 MG, 47 TOTAL DOSES^^
     Dates: start: 20231020, end: 20240913
  5. SPRAVATO [Suspect]
     Active Substance: ESKETAMINE
     Dosage: ^^84 MG, 1 TOTAL DOSE^^, RECENT DOSE
     Dates: start: 20240920, end: 20240920

REACTIONS (1)
  - Blood pressure increased [Unknown]

NARRATIVE: CASE EVENT DATE: 20240920
